FAERS Safety Report 5675541-X (Version None)
Quarter: 2008Q2

REPORT INFORMATION
  Report Type: 
  Country: None (occurrence: None)
  Receive Date: 20080311
  Receipt Date: 20071010
  Transmission Date: 20081010
  Serious: Yes (Other)
  Sender: FDA-Public Use
  Company Number: PHEH2007US13414

PATIENT
  Sex: Female

DRUGS (2)
  1. TRILEPTAL [Suspect]
     Dosage: 150 MG, 300 MG, BID
     Dates: end: 20070921
  2. TRILEPTAL [Suspect]
     Dosage: 150 MG, 300 MG, BID
     Dates: end: 20070921

REACTIONS (5)
  - CONFUSIONAL STATE [None]
  - COORDINATION ABNORMAL [None]
  - DYSARTHRIA [None]
  - GAIT DISTURBANCE [None]
  - MUSCULOSKELETAL STIFFNESS [None]
